FAERS Safety Report 24310107 (Version 16)
Quarter: 2025Q4

REPORT INFORMATION
  Report Type: Report from Study
  Country: US (occurrence: US)
  Receive Date: 20240912
  Receipt Date: 20251022
  Transmission Date: 20260117
  Serious: Yes (Hospitalization, Other)
  Sender: BIOVITRUM
  Company Number: US-BIOVITRUM-2024-US-011191

PATIENT
  Age: 63 Year
  Sex: Male

DRUGS (7)
  1. DOPTELET [Suspect]
     Active Substance: AVATROMBOPAG MALEATE
     Indication: Thrombocytopenia
     Dosage: TAKE 1 TABLET ONCE DAILY
     Route: 048
     Dates: start: 20240706
  2. DOPTELET [Suspect]
     Active Substance: AVATROMBOPAG MALEATE
     Indication: White blood cell count decreased
     Dosage: DAILY
     Route: 048
     Dates: start: 20240806
  3. DOPTELET [Suspect]
     Active Substance: AVATROMBOPAG MALEATE
     Dosage: DAILY
     Route: 048
     Dates: start: 20240806
  4. DOPTELET [Suspect]
     Active Substance: AVATROMBOPAG MALEATE
     Dosage: DAILY, 20 MG 2 TABLETS ONCE DAILY
     Route: 048
     Dates: start: 20240816
  5. DOPTELET [Suspect]
     Active Substance: AVATROMBOPAG MALEATE
     Dosage: DAILY
     Route: 048
     Dates: start: 20240816
  6. SPIRONOLACTONE [Suspect]
     Active Substance: SPIRONOLACTONE
     Indication: Product used for unknown indication
  7. FUROSEMIDE [Suspect]
     Active Substance: FUROSEMIDE
     Indication: Product used for unknown indication

REACTIONS (25)
  - Platelet count decreased [Recovering/Resolving]
  - Fatigue [Unknown]
  - Drug effect less than expected [Not Recovered/Not Resolved]
  - Product dose omission in error [Unknown]
  - Red blood cell count decreased [Unknown]
  - Blood iron decreased [Unknown]
  - Product dose omission issue [Unknown]
  - Frequent bowel movements [Unknown]
  - Liver disorder [Unknown]
  - Pancreatic disorder [Unknown]
  - Cellulitis [Unknown]
  - Platelet count abnormal [Unknown]
  - Hypoaesthesia [Unknown]
  - Muscle fatigue [Unknown]
  - Asthenia [Unknown]
  - Drug ineffective [Unknown]
  - Gastric haemorrhage [Unknown]
  - Illness [Unknown]
  - Blood test abnormal [Unknown]
  - Ascites [Not Recovered/Not Resolved]
  - Haemoglobin decreased [Unknown]
  - Emotional disorder [Unknown]
  - Abdominal distension [Unknown]
  - Intentional dose omission [Unknown]
  - Condition aggravated [Not Recovered/Not Resolved]
